FAERS Safety Report 11754332 (Version 1)
Quarter: 2015Q4

REPORT INFORMATION
  Report Type: Spontaneous
  Country: US (occurrence: None)
  Receive Date: 20151118
  Receipt Date: 20151118
  Transmission Date: 20160304
  Serious: Yes (Hospitalization)
  Sender: FDA-Public Use
  Company Number: None

PATIENT
  Age: 72 Year
  Sex: Female
  Weight: 108.86 kg

DRUGS (18)
  1. CELEBREX [Concomitant]
     Active Substance: CELECOXIB
  2. ISOSORBIDE. [Concomitant]
     Active Substance: ISOSORBIDE
  3. ATORVASTATIN CALCIUM. [Concomitant]
     Active Substance: ATORVASTATIN CALCIUM
  4. LOSARTAN POT [Suspect]
     Active Substance: LOSARTAN POTASSIUM
     Dates: start: 20150619
  5. SYNTHROID [Concomitant]
     Active Substance: LEVOTHYROXINE SODIUM
  6. STOOL SOFTNER [Concomitant]
  7. CLOPIDOGREL BISULFATE. [Concomitant]
     Active Substance: CLOPIDOGREL BISULFATE
  8. VALSARTAN 40MG [Suspect]
     Active Substance: VALSARTAN
     Route: 048
     Dates: start: 20150609
  9. PANTOPRAZOLE SOD [Concomitant]
     Active Substance: PANTOPRAZOLE SODIUM
  10. VITAMIN D3 [Concomitant]
     Active Substance: CHOLECALCIFEROL
  11. PACEMAKER [Concomitant]
  12. CLONIDINE HCL [Concomitant]
     Active Substance: CLONIDINE HYDROCHLORIDE
  13. BYSTOLIC [Suspect]
     Active Substance: NEBIVOLOL HYDROCHLORIDE
     Dosage: 1 X DA AM 1 X BED
     Route: 048
     Dates: start: 20150619
  14. HYDRALAZINE [Concomitant]
     Active Substance: HYDRALAZINE HYDROCHLORIDE
  15. AMIODARONE HCL [Concomitant]
     Active Substance: AMIODARONE HYDROCHLORIDE
  16. RANEXA [Suspect]
     Active Substance: RANOLAZINE
     Indication: CARDIAC DISORDER
     Route: 048
     Dates: start: 20150619
  17. TOPORAL [Concomitant]
  18. ASPIRIN. [Concomitant]
     Active Substance: ASPIRIN

REACTIONS (8)
  - Tremor [None]
  - Dizziness [None]
  - Fall [None]
  - Dysstasia [None]
  - Balance disorder [None]
  - Abasia [None]
  - Asthenia [None]
  - Walking aid user [None]
